FAERS Safety Report 8785479 (Version 1)
Quarter: 2012Q4

REPORT INFORMATION
  Report Type: Spontaneous
  Country: US (occurrence: None)
  Receive Date: 20120904
  Receipt Date: 20120904
  Transmission Date: 20130627
  Serious: Yes (Other)
  Sender: FDA-Public Use
  Company Number: FK201202534

PATIENT
  Age: 21 Year

DRUGS (1)
  1. VOLUVEN [Suspect]
     Indication: SURGERY

REACTIONS (1)
  - Procedural haemorrhage [None]
